FAERS Safety Report 8524592-6 (Version None)
Quarter: 2012Q3

REPORT INFORMATION
  Report Type: 
  Country: None (occurrence: None)
  Receive Date: 20120720
  Receipt Date: 20120718
  Transmission Date: 20120928
  Serious: Yes (Death, Hospitalization)
  Sender: FDA-Public Use
  Company Number: AU-B.I. PHARMACEUTICALS,INC./RIDGEFIELD-2012-AU-01251AU

PATIENT
  Sex: Female
  Weight: 64 kg

DRUGS (14)
  1. MODURETIC 5-50 [Concomitant]
  2. LANOXIN [Concomitant]
  3. LIPITOR [Concomitant]
  4. PRADAXA [Suspect]
     Indication: CEREBROVASCULAR ACCIDENT PROPHYLAXIS
     Dosage: 220 MG
     Dates: start: 20110915, end: 20120625
  5. PRADAXA [Suspect]
     Indication: ATRIAL FIBRILLATION
  6. BLACKMORES LUTEIN-VISION [Concomitant]
  7. OSTELIN [Concomitant]
  8. PAROXETINE HCL [Concomitant]
  9. VALIUM [Concomitant]
  10. ACETAMINOPHEN [Concomitant]
  11. ANTISTINE-PRIVINE [Concomitant]
  12. TEVETEN HCT [Concomitant]
  13. BLACKMORES MACU VISION [Concomitant]
  14. METOPROLOL TARTRATE [Concomitant]

REACTIONS (1)
  - CEREBELLAR INFARCTION [None]
